FAERS Safety Report 20569117 (Version 1)
Quarter: 2022Q1

REPORT INFORMATION
  Report Type: Spontaneous
  Country: US (occurrence: US)
  Receive Date: 20220308
  Receipt Date: 20220308
  Transmission Date: 20220423
  Serious: No
  Sender: FDA-Public Use
  Company Number: US-Blueprint Medicines Corporation-SP-US-2022-000581

PATIENT
  Age: 60 Year
  Sex: Female

DRUGS (10)
  1. AYVAKIT [Suspect]
     Active Substance: AVAPRITINIB
     Indication: Gastrointestinal stromal tumour
     Route: 048
     Dates: start: 20220218
  2. VITAMIN D3 [Concomitant]
     Active Substance: CHOLECALCIFEROL
  3. SPIRONOLACTONE [Concomitant]
     Active Substance: SPIRONOLACTONE
  4. ROSUVASTATIN [Concomitant]
     Active Substance: ROSUVASTATIN
  5. OXYCODONE [Concomitant]
     Active Substance: OXYCODONE
  6. OXCARBAZEPINE [Concomitant]
     Active Substance: OXCARBAZEPINE
  7. LOSARTAN [Concomitant]
     Active Substance: LOSARTAN
  8. DOCUSATE [Concomitant]
     Active Substance: DOCUSATE
  9. AMBIEN [Concomitant]
     Active Substance: ZOLPIDEM TARTRATE
  10. AMLODIPINE [Concomitant]
     Active Substance: AMLODIPINE BESYLATE

REACTIONS (1)
  - Vomiting [Recovered/Resolved]

NARRATIVE: CASE EVENT DATE: 20220225
